FAERS Safety Report 25206905 (Version 2)
Quarter: 2025Q3

REPORT INFORMATION
  Report Type: Spontaneous
  Country: US (occurrence: US)
  Receive Date: 20250417
  Receipt Date: 20250715
  Transmission Date: 20251020
  Serious: Yes (Hospitalization, Other)
  Sender: BRISTOL-MYERS SQUIBB COMPANY
  Company Number: US-BRISTOL-MYERS SQUIBB COMPANY-2025-053503

PATIENT
  Age: 43 Year
  Sex: Male

DRUGS (3)
  1. NELVUTAMIG [Suspect]
     Active Substance: NELVUTAMIG
     Indication: Conjunctival melanoma
  2. NIVOLUMAB [Suspect]
     Active Substance: NIVOLUMAB
     Indication: Conjunctival melanoma
  3. MITOMYCIN C [Concomitant]
     Active Substance: MITOMYCIN
     Indication: Conjunctival melanoma
     Dosage: 2 WEEKS WITH 1 WEEK OFF IN BETWEEN
     Route: 061

REACTIONS (1)
  - Immune-mediated enterocolitis [Recovered/Resolved]
